FAERS Safety Report 6197243-6 (Version None)
Quarter: 2009Q2

REPORT INFORMATION
  Report Type: 
  Country: None (occurrence: None)
  Receive Date: 20090521
  Receipt Date: 20080612
  Transmission Date: 20091009
  Serious: Yes (Other)
  Sender: FDA-Public Use
  Company Number: US-ASTRAZENECA-2006UW20990

PATIENT
  Age: 42 Year
  Sex: Female
  Weight: 80.3 kg

DRUGS (14)
  1. SEROQUEL [Suspect]
     Indication: DEPRESSION
     Dosage: 25MG, 100MG
     Route: 048
     Dates: start: 20050823, end: 20060310
  2. SEROQUEL [Suspect]
     Route: 048
     Dates: end: 20050101
  3. GEODON [Concomitant]
     Dates: start: 20060621
  4. RISPERDAL [Concomitant]
     Dates: start: 20060621
  5. CELEXA [Concomitant]
     Dosage: 20-40 MG
     Route: 048
  6. DIOVAN [Concomitant]
     Route: 048
  7. KLOR-CON [Concomitant]
     Route: 048
  8. NEXIUM [Concomitant]
     Route: 048
  9. ALBUTEROL [Concomitant]
     Route: 065
  10. ADVAIR HFA [Concomitant]
     Route: 048
  11. ATACAND [Concomitant]
     Route: 048
  12. ZYRTEC [Concomitant]
     Route: 048
  13. HYDROCHLOROTHIAZIDE [Concomitant]
     Route: 048
  14. ZOLOFT [Concomitant]
     Dosage: 50-100 MG
     Route: 048

REACTIONS (18)
  - ALCOHOL ABUSE [None]
  - ALOPECIA [None]
  - ASTHENIA [None]
  - CRYING [None]
  - DECREASED APPETITE [None]
  - DENTAL CARIES [None]
  - FEELING COLD [None]
  - GASTROOESOPHAGEAL REFLUX DISEASE [None]
  - HALLUCINATION, AUDITORY [None]
  - HEADACHE [None]
  - HYPERGLYCAEMIA [None]
  - HYPERTENSION [None]
  - ILLUSION [None]
  - MAJOR DEPRESSION [None]
  - MUSCLE SPASMS [None]
  - PSYCHOTIC DISORDER [None]
  - SELF-INJURIOUS IDEATION [None]
  - WEIGHT DECREASED [None]
